FAERS Safety Report 6411910-8 (Version None)
Quarter: 2009Q4

REPORT INFORMATION
  Report Type: 
  Country: None (occurrence: None)
  Receive Date: 20091023
  Receipt Date: 20091012
  Transmission Date: 20100525
  Serious: Yes (Hospitalization)
  Sender: FDA-Public Use
  Company Number: FR-PFIZER INC-2009282039

PATIENT
  Age: 57 Year

DRUGS (5)
  1. SUTENT [Suspect]
     Indication: RENAL CELL CARCINOMA
     Dosage: 50 MG, UNK
     Route: 048
     Dates: start: 20090903, end: 20090906
  2. VALSARTAN AND HYDROCHLOROTHIAZIDE [Concomitant]
     Indication: HYPERTENSION
     Dosage: UNK
  3. VERAPAMIL [Concomitant]
     Indication: HYPERTENSION
     Dosage: UNK
  4. HYPERIUM [Concomitant]
     Indication: HYPERTENSION
     Dosage: UNK
  5. ALPRESS LP [Concomitant]
     Indication: HYPERTENSION
     Dosage: UNK

REACTIONS (1)
  - BLOOD PRESSURE ABNORMAL [None]
